FAERS Safety Report 18220094 (Version 1)
Quarter: 2020Q3

REPORT INFORMATION
  Report Type: Report from Study
  Country: None (occurrence: GR)
  Receive Date: 20200902
  Receipt Date: 20200902
  Transmission Date: 20201103
  Serious: Yes (Death)
  Sender: FDA-Public Use
  Company Number: GR-ABBVIE-20K-066-3547525-00

PATIENT
  Age: 68 Year
  Sex: Female
  Weight: 45 kg

DRUGS (6)
  1. DUODOPA [Suspect]
     Active Substance: CARBIDOPA\LEVODOPA
     Indication: PARKINSON^S DISEASE
     Dosage: CONTINUOUS RATE: 5.0 ML/H (24H ADMINISTRATION); EXTRA DOSE: 3.5ML
     Route: 050
     Dates: start: 20160309
  2. EXELON [Concomitant]
     Active Substance: RIVASTIGMINE TARTRATE
     Indication: PRODUCT USED FOR UNKNOWN INDICATION
     Route: 062
  3. STILNOX [Concomitant]
     Active Substance: ZOLPIDEM TARTRATE
     Indication: PRODUCT USED FOR UNKNOWN INDICATION
     Route: 048
  4. GLEPARK [Concomitant]
     Indication: PARKINSON^S DISEASE
     Route: 048
  5. DUODOPA [Suspect]
     Active Substance: CARBIDOPA\LEVODOPA
  6. APO?GO [Concomitant]
     Active Substance: APOMORPHINE
     Indication: PARKINSON^S DISEASE
     Dosage: 5?6 TIMES DAILY

REACTIONS (4)
  - Malaise [Unknown]
  - Malnutrition [Unknown]
  - Death [Fatal]
  - Fluid intake reduced [Unknown]

NARRATIVE: CASE EVENT DATE: 2020
